FAERS Safety Report 9831921 (Version 1)
Quarter: 2014Q1

REPORT INFORMATION
  Report Type: Spontaneous
  Country: US (occurrence: US)
  Receive Date: 20140121
  Receipt Date: 20140121
  Transmission Date: 20141002
  Serious: No
  Sender: FDA-Public Use
  Company Number: US-PFIZER INC-2014014846

PATIENT
  Age: 52 Year
  Sex: Male
  Weight: 74.83 kg

DRUGS (3)
  1. VIAGRA [Suspect]
     Indication: ERECTILE DYSFUNCTION
     Dosage: 25 MG, DAILY
     Route: 048
     Dates: start: 20140110
  2. VIAGRA [Suspect]
     Dosage: 50 MG (TWO 25 MG TABLETS), DAILY
     Route: 048
     Dates: start: 20140112
  3. VIAGRA [Suspect]
     Dosage: 100 MG, UNK
     Dates: start: 2014

REACTIONS (1)
  - Drug ineffective [Unknown]
